FAERS Safety Report 12931824 (Version 2)
Quarter: 2017Q1

REPORT INFORMATION
  Report Type: Spontaneous
  Country: CA (occurrence: CA)
  Receive Date: 20161111
  Receipt Date: 20170112
  Transmission Date: 20170428
  Serious: Yes (Other)
  Sender: FDA-Public Use
  Company Number: CA-AMGEN-CANSP2016155520

PATIENT
  Age: 4 Year
  Sex: Male
  Weight: 13.4 kg

DRUGS (3)
  1. VITAMIN D3 [Concomitant]
     Active Substance: CHOLECALCIFEROL
     Indication: VITAMIN D ABNORMAL
     Dosage: 1000 IU, QD
     Dates: start: 20130626, end: 20161102
  2. PROLIA [Suspect]
     Active Substance: DENOSUMAB
     Indication: OSTEOGENESIS IMPERFECTA
     Dosage: 1 MG/KG, Q3MO
     Route: 058
     Dates: start: 20140319
  3. PROLIA [Suspect]
     Active Substance: DENOSUMAB
     Indication: OSTEOPOROSIS
     Dosage: 1 MG/KG, Q2MO
     Route: 058
     Dates: end: 20161102

REACTIONS (8)
  - Neutralising antibodies [Unknown]
  - Polyuria [Recovered/Resolved]
  - Blood parathyroid hormone decreased [Unknown]
  - Off label use [Unknown]
  - Hypercalciuria [Recovered/Resolved]
  - Nephrocalcinosis [Unknown]
  - Hypercalcaemia [Recovered/Resolved]
  - Blood creatinine increased [Recovered/Resolved]

NARRATIVE: CASE EVENT DATE: 20161102
